FAERS Safety Report 5832303-8 (Version None)
Quarter: 2008Q3

REPORT INFORMATION
  Report Type: 
  Country: None (occurrence: None)
  Receive Date: 20080804
  Receipt Date: 20080728
  Transmission Date: 20090109
  Serious: Yes (Other)
  Sender: FDA-Public Use
  Company Number: B0360385A

PATIENT
  Age: 36 Year
  Sex: Female

DRUGS (2)
  1. PAROXETINE HCL [Suspect]
     Route: 065
     Dates: start: 19960101
  2. AMITRIPTYLINE HCL [Concomitant]
     Dates: start: 20011029, end: 20050617

REACTIONS (20)
  - ADVERSE DRUG REACTION [None]
  - AGITATION [None]
  - ALTERED VISUAL DEPTH PERCEPTION [None]
  - ANOREXIA [None]
  - ANXIETY [None]
  - CONFUSIONAL STATE [None]
  - DIARRHOEA [None]
  - DISABILITY [None]
  - DIZZINESS [None]
  - FATIGUE [None]
  - INSOMNIA [None]
  - NAUSEA [None]
  - NIGHTMARE [None]
  - PARAESTHESIA [None]
  - SENSORY DISTURBANCE [None]
  - STRESS [None]
  - SUICIDAL IDEATION [None]
  - VISUAL IMPAIRMENT [None]
  - VOMITING [None]
  - WITHDRAWAL SYNDROME [None]
